FAERS Safety Report 8763741 (Version 7)
Quarter: 2014Q4

REPORT INFORMATION
  Report Type: Report from Study
  Country: US (occurrence: US)
  Receive Date: 20120831
  Receipt Date: 20141014
  Transmission Date: 20150529
  Serious: Yes (Hospitalization)
  Sender: FDA-Public Use
  Company Number: PHEH2012US001380

PATIENT
  Age: 17 Year
  Sex: Female
  Weight: 45.35 kg

DRUGS (9)
  1. RETIN-A [Concomitant]
     Active Substance: TRETINOIN
     Indication: PRODUCT USED FOR UNKNOWN INDICATION
  2. AFINITOR [Suspect]
     Active Substance: EVEROLIMUS
     Indication: TUBEROUS SCLEROSIS
     Dosage: 5 MG, QD
     Route: 048
     Dates: start: 20120111
  3. SINGULAIR [Concomitant]
     Active Substance: MONTELUKAST SODIUM
     Indication: PRODUCT USED FOR UNKNOWN INDICATION
  4. FLOVENT [Concomitant]
     Active Substance: FLUTICASONE PROPIONATE
     Indication: PRODUCT USED FOR UNKNOWN INDICATION
  5. LAMICTAL [Concomitant]
     Active Substance: LAMOTRIGINE
     Indication: PRODUCT USED FOR UNKNOWN INDICATION
  6. AFINITOR [Suspect]
     Active Substance: EVEROLIMUS
     Dosage: 10 MG, QD
     Route: 048
  7. LISINOPRIL. [Concomitant]
     Active Substance: LISINOPRIL
     Indication: PRODUCT USED FOR UNKNOWN INDICATION
  8. ALBUTEROL. [Concomitant]
     Active Substance: ALBUTEROL
     Indication: PRODUCT USED FOR UNKNOWN INDICATION
  9. MELATONIN [Concomitant]
     Active Substance: MELATONIN
     Indication: INSOMNIA

REACTIONS (28)
  - Increased appetite [Unknown]
  - Paraesthesia [Not Recovered/Not Resolved]
  - Flank pain [Not Recovered/Not Resolved]
  - Eating disorder [Recovering/Resolving]
  - Chills [Unknown]
  - Lymphadenopathy [Unknown]
  - Throat tightness [Unknown]
  - Hot flush [Recovered/Resolved]
  - Abdominal pain [Recovering/Resolving]
  - Lymphangioleiomyomatosis [Unknown]
  - Vomiting [Recovering/Resolving]
  - Abnormal behaviour [Unknown]
  - Feeling abnormal [Not Recovered/Not Resolved]
  - Musculoskeletal chest pain [Unknown]
  - Hypercholesterolaemia [Not Recovered/Not Resolved]
  - Gastroenteritis viral [Unknown]
  - Chest pain [Unknown]
  - Malignant neoplasm progression [Unknown]
  - Insomnia [Recovering/Resolving]
  - Blood pressure increased [Not Recovered/Not Resolved]
  - Nausea [Recovering/Resolving]
  - Dyspnoea [Unknown]
  - Headache [Not Recovered/Not Resolved]
  - Depressed mood [Unknown]
  - Drug level decreased [Unknown]
  - Neoplasm [Unknown]
  - Fatigue [Not Recovered/Not Resolved]
  - Renal pain [Unknown]

NARRATIVE: CASE EVENT DATE: 20120111
